FAERS Safety Report 18190896 (Version 1)
Quarter: 2020Q3

REPORT INFORMATION
  Report Type: Spontaneous
  Country: GB (occurrence: GB)
  Receive Date: 20200825
  Receipt Date: 20200825
  Transmission Date: 20201103
  Serious: No
  Sender: FDA-Public Use
  Company Number: GB-LUPIN PHARMACEUTICALS INC.-2020-03835

PATIENT
  Sex: Female

DRUGS (8)
  1. METOCLOPRAMIDE HYDROCHLOROIDE [Suspect]
     Active Substance: METOCLOPRAMIDE HYDROCHLORIDE
     Indication: PROPHYLAXIS
     Dosage: UNK, ADMINISTERED ON THE MORNING OF SURGERY AND THE NIGHT PRIOR
     Route: 065
  2. PROPOFOL. [Suspect]
     Active Substance: PROPOFOL
     Indication: GENERAL ANAESTHESIA
     Dosage: 100 MILLIGRAM
     Route: 042
  3. FENTANYL. [Suspect]
     Active Substance: FENTANYL
     Indication: GENERAL ANAESTHESIA
     Dosage: 100 MICROGRAM
     Route: 042
  4. SEVOFLURANE. [Suspect]
     Active Substance: SEVOFLURANE
     Dosage: 2 PERCENT
     Route: 065
  5. ROCURONIUM [Suspect]
     Active Substance: ROCURONIUM BROMIDE
     Indication: ANAESTHESIA PROCEDURE
     Dosage: 80 MILLIGRAM
     Route: 042
  6. RANITIDINE. [Suspect]
     Active Substance: RANITIDINE
     Indication: PROPHYLAXIS
     Dosage: ADMINISTERED ON THE MORNING OF SURGERY AND THE NIGHT PRIOR
     Route: 065
  7. SEVOFLURANE. [Suspect]
     Active Substance: SEVOFLURANE
     Indication: GENERAL ANAESTHESIA
     Dosage: 8 PERCENT
     Route: 065
  8. NITROUS OXIDE;OXYGEN [Suspect]
     Active Substance: NITROUS OXIDE\OXYGEN
     Indication: GENERAL ANAESTHESIA
     Dosage: UNK, 50/50 MIXTURE

REACTIONS (1)
  - Maternal exposure during pregnancy [Unknown]
